FAERS Safety Report 7546663-3 (Version None)
Quarter: 2011Q2

REPORT INFORMATION
  Report Type: 
  Country: None (occurrence: None)
  Receive Date: 20110524
  Receipt Date: 20110218
  Transmission Date: 20111010
  Serious: No
  Sender: FDA-Public Use
  Company Number: 027807

PATIENT
  Sex: Male
  Weight: 93 kg

DRUGS (4)
  1. XANAX [Concomitant]
  2. ZOLOFT [Concomitant]
  3. CIMZIA [Suspect]
     Indication: CROHN'S DISEASE
     Dosage: (2 INJECTIONS SUBCUTANEOUS)
     Route: 058
     Dates: start: 20100101, end: 20110115
  4. SYNTHROID [Concomitant]

REACTIONS (4)
  - SINUSITIS [None]
  - COUGH [None]
  - BRONCHITIS [None]
  - MALAISE [None]
